FAERS Safety Report 16253830 (Version 1)
Quarter: 2019Q2

REPORT INFORMATION
  Report Type: Spontaneous
  Country: US (occurrence: US)
  Receive Date: 20190430
  Receipt Date: 20190430
  Transmission Date: 20190711
  Serious: Yes (Hospitalization, Other)
  Sender: FDA-Public Use
  Company Number: US-AUROBINDO-AUR-APL-2019-023244

PATIENT

DRUGS (1)
  1. METHADONE [Suspect]
     Active Substance: METHADONE HYDROCHLORIDE
     Indication: PRODUCT USED FOR UNKNOWN INDICATION
     Dosage: UNK
     Route: 065

REACTIONS (23)
  - Apnoea [Unknown]
  - Nasal congestion [Unknown]
  - Bradycardia [Unknown]
  - Hemiparesis [Not Recovered/Not Resolved]
  - Condition aggravated [Unknown]
  - Blood creatinine increased [Unknown]
  - Miosis [Recovered/Resolved]
  - Transaminases increased [Unknown]
  - Encephalopathy [Unknown]
  - Dysphagia [Not Recovered/Not Resolved]
  - Leukocytosis [Unknown]
  - Blood urea increased [Unknown]
  - Superior sagittal sinus thrombosis [Unknown]
  - Rhinovirus infection [Unknown]
  - Unresponsive to stimuli [Unknown]
  - Pupillary reflex impaired [Recovered/Resolved]
  - Cerebellar infarction [Unknown]
  - Hydrocephalus [Unknown]
  - Hypotension [Unknown]
  - Pupils unequal [Unknown]
  - Toxicity to various agents [Unknown]
  - Congestive cardiomyopathy [Unknown]
  - Intracranial pressure increased [Unknown]
